FAERS Safety Report 18816913 (Version 1)
Quarter: 2021Q1

REPORT INFORMATION
  Report Type: Spontaneous
  Country: GB (occurrence: GB)
  Receive Date: 20210201
  Receipt Date: 20210201
  Transmission Date: 20210419
  Serious: Yes (Other)
  Sender: FDA-Public Use
  Company Number: GB-AMGEN-GBRSP2021013216

PATIENT
  Age: 66 Year
  Sex: Female
  Weight: 65.31 kg

DRUGS (9)
  1. CLOPIDOGREL [Concomitant]
     Active Substance: CLOPIDOGREL BISULFATE
     Indication: ILL-DEFINED DISORDER
  2. LETROZOL [Concomitant]
     Active Substance: LETROZOLE
     Indication: ILL-DEFINED DISORDER
  3. EZETIMIBE. [Concomitant]
     Active Substance: EZETIMIBE
     Indication: ILL-DEFINED DISORDER
  4. MIRTAZAPINE. [Concomitant]
     Active Substance: MIRTAZAPINE
     Indication: ILL-DEFINED DISORDER
  5. PROLIA [Suspect]
     Active Substance: DENOSUMAB
     Indication: ILL-DEFINED DISORDER
     Dosage: 60 MILLIGRAM PER MILLILITRE
     Route: 065
     Dates: start: 20210115
  6. COLECALCIFEROL [Concomitant]
     Active Substance: CHOLECALCIFEROL
     Indication: ILL-DEFINED DISORDER
  7. ZOLPIDEM [Concomitant]
     Active Substance: ZOLPIDEM TARTRATE
     Indication: ILL-DEFINED DISORDER
  8. PROLIA [Suspect]
     Active Substance: DENOSUMAB
     Indication: OSTEOPOROSIS
  9. LANSOPRAZOLE. [Concomitant]
     Active Substance: LANSOPRAZOLE
     Indication: ILL-DEFINED DISORDER

REACTIONS (4)
  - Pain in jaw [Not Recovered/Not Resolved]
  - Ear discomfort [Not Recovered/Not Resolved]
  - Medication error [Unknown]
  - Dizziness [Not Recovered/Not Resolved]

NARRATIVE: CASE EVENT DATE: 20210115
